FAERS Safety Report 23163218 (Version 1)
Quarter: 2023Q4

REPORT INFORMATION
  Report Type: Spontaneous
  Country: FR (occurrence: FR)
  Receive Date: 20231109
  Receipt Date: 20231109
  Transmission Date: 20240110
  Serious: Yes (Hospitalization)
  Sender: FDA-Public Use
  Company Number: None

PATIENT
  Age: 62 Year
  Sex: Female
  Weight: 83 kg

DRUGS (2)
  1. FLUOROURACIL [Suspect]
     Active Substance: FLUOROURACIL
     Indication: Adenocarcinoma
     Dates: start: 20230825, end: 20230825
  2. OXALIPLATIN [Concomitant]
     Active Substance: OXALIPLATIN
     Indication: Adenocarcinoma
     Dates: start: 20230703, end: 20230703

REACTIONS (1)
  - Microangiopathy [Recovered/Resolved]

NARRATIVE: CASE EVENT DATE: 20230906
